FAERS Safety Report 10487699 (Version 4)
Quarter: 2015Q1

REPORT INFORMATION
  Report Type: Report from Study
  Country: US (occurrence: US)
  Receive Date: 20141001
  Receipt Date: 20150228
  Transmission Date: 20150720
  Serious: Yes (Other)
  Sender: FDA-Public Use
  Company Number: PHEH2014US018746

PATIENT
  Age: 28 Year
  Sex: Female
  Weight: 76.3 kg

DRUGS (1)
  1. GILENYA [Suspect]
     Active Substance: FINGOLIMOD HYDROCHLORIDE
     Indication: MULTIPLE SCLEROSIS
     Dosage: 0.5 MG, QD
     Route: 048
     Dates: start: 20140730, end: 20140903

REACTIONS (6)
  - Myelitis transverse [Recovered/Resolved]
  - Pleurisy [Unknown]
  - Chest pain [Unknown]
  - Musculoskeletal pain [Unknown]
  - Pain in extremity [Unknown]
  - Brachial plexopathy [Recovered/Resolved]

NARRATIVE: CASE EVENT DATE: 20140902
